FAERS Safety Report 5573506-X (Version None)
Quarter: 2007Q4

REPORT INFORMATION
  Report Type: 
  Country: None (occurrence: None)
  Receive Date: 20071226
  Receipt Date: 20071211
  Transmission Date: 20080405
  Serious: Yes (Hospitalization)
  Sender: FDA-Public Use
  Company Number: FR-AVENTIS-200714001FR

PATIENT
  Age: 41 Year
  Sex: Female

DRUGS (2)
  1. CLOMID [Suspect]
     Indication: DRUG USE FOR UNKNOWN INDICATION
     Route: 048
     Dates: start: 20070701, end: 20070701
  2. TANGANIL                           /00129601/ [Concomitant]
     Indication: MENIERE'S DISEASE

REACTIONS (1)
  - HAEMOPTYSIS [None]
